FAERS Safety Report 23783273 (Version 1)
Quarter: 2024Q2

REPORT INFORMATION
  Report Type: Spontaneous
  Country: US (occurrence: None)
  Receive Date: 20240424
  Receipt Date: 20240424
  Transmission Date: 20240715
  Serious: No
  Sender: FDA-Public Use
  Company Number: None

PATIENT
  Age: 68 Year
  Sex: Male

DRUGS (1)
  1. LISINOPRIL [Suspect]
     Active Substance: LISINOPRIL
     Dates: start: 20231228, end: 20240124

REACTIONS (4)
  - Angioedema [None]
  - Rash [None]
  - Acute kidney injury [None]
  - Hypertension [None]

NARRATIVE: CASE EVENT DATE: 20240124
